FAERS Safety Report 6992107-X (Version None)
Quarter: 2010Q3

REPORT INFORMATION
  Report Type: 
  Country: None (occurrence: None)
  Receive Date: 20100917
  Receipt Date: 20100910
  Transmission Date: 20110219
  Serious: Yes (Other)
  Sender: FDA-Public Use
  Company Number: DE-ASTRAZENECA-2010SE39012

PATIENT
  Age: 15633 Day
  Sex: Female
  Weight: 52 kg

DRUGS (6)
  1. NAROPIN [Suspect]
     Indication: PAIN
     Route: 037
     Dates: start: 20100802
  2. NAROPIN [Suspect]
     Route: 037
     Dates: start: 20100806
  3. TRAMADOL HCL [Concomitant]
  4. IBUPROFEN [Concomitant]
  5. DOMPERIDON [Concomitant]
  6. OMEP [Concomitant]

REACTIONS (1)
  - SUICIDAL IDEATION [None]
